FAERS Safety Report 10070648 (Version 1)
Quarter: 2014Q2

REPORT INFORMATION
  Report Type: Report from Study
  Country: US (occurrence: US)
  Receive Date: 20140410
  Receipt Date: 20140410
  Transmission Date: 20141212
  Serious: Yes (Other)
  Sender: FDA-Public Use
  Company Number: US-JNJFOC-20140404625

PATIENT
  Sex: Female
  Weight: 78.02 kg

DRUGS (6)
  1. REMICADE [Suspect]
     Indication: RHEUMATOID ARTHRITIS
     Route: 042
     Dates: start: 201001
  2. METHOTREXATE [Concomitant]
     Indication: RHEUMATOID ARTHRITIS
     Dosage: EVERY WEDNESDAY
     Route: 058
     Dates: start: 2010
  3. LEVOTHYROXINE [Concomitant]
     Indication: THYROID DISORDER
     Dosage: EVERY WEDNESDAY
     Route: 048
     Dates: start: 2007
  4. TYLENOL [Concomitant]
     Indication: PAIN
     Dosage: EVERY WEDNESDAY
     Route: 048
     Dates: start: 2012
  5. HYDROCODONE [Concomitant]
     Indication: PAIN
     Dosage: EVERY WEDNESDAY
     Route: 048
     Dates: start: 2012
  6. FLUOXETINE [Concomitant]
     Indication: MOOD SWINGS
     Dosage: EVERY WEDNESDAY
     Route: 048
     Dates: start: 2010

REACTIONS (4)
  - Foot deformity [Recovered/Resolved]
  - Cholelithiasis [Recovered/Resolved]
  - Fall [Unknown]
  - Malaise [Recovering/Resolving]
